FAERS Safety Report 4847613-0 (Version None)
Quarter: 2005Q4

REPORT INFORMATION
  Report Type: 
  Country: None (occurrence: None)
  Receive Date: 20051205
  Receipt Date: 20051121
  Transmission Date: 20060501
  Serious: Yes (Hospitalization)
  Sender: FDA-Public Use
  Company Number: 2005160175

PATIENT
  Age: 40 Year
  Sex: Female

DRUGS (2)
  1. ZELDOX (CAPSULES) (ZIPRASIDONE) [Suspect]
     Indication: SCHIZOAFFECTIVE DISORDER
     Dosage: 100 MG, ORAL
     Route: 048
     Dates: start: 20030501, end: 20040401
  2. JODTHYROX (LEVOTHYROXINE SODIUM, POTASSIUM IODIDE) [Concomitant]

REACTIONS (4)
  - GAZE PALSY [None]
  - OROPHARYNGEAL SPASM [None]
  - PARKINSONISM [None]
  - PSYCHOTIC DISORDER [None]
